FAERS Safety Report 12411578 (Version 1)
Quarter: 2016Q2

REPORT INFORMATION
  Report Type: Spontaneous
  Country: US (occurrence: None)
  Receive Date: 20160526
  Receipt Date: 20160526
  Transmission Date: 20160815
  Serious: No
  Sender: FDA-Public Use
  Company Number: None

PATIENT
  Age: 85 Year
  Sex: Female
  Weight: 71.67 kg

DRUGS (5)
  1. METOPROLOL ER (SUCC) TAB 100MG [Concomitant]
     Active Substance: METOPROLOL SUCCINATE
  2. PREVACID [Concomitant]
     Active Substance: LANSOPRAZOLE
  3. HARVONI [Suspect]
     Active Substance: LEDIPASVIR\SOFOSBUVIR
     Indication: HEPATITIS C
     Dosage: 90MG-400MG TABLETS 1 ONCE A DAY MOUTH
     Route: 048
     Dates: start: 20151228, end: 20160320
  4. FLUOXETINE [Concomitant]
     Active Substance: FLUOXETINE HYDROCHLORIDE
  5. LEVOTHYROXINE. [Concomitant]
     Active Substance: LEVOTHYROXINE

REACTIONS (2)
  - Rash [None]
  - Pruritus generalised [None]

NARRATIVE: CASE EVENT DATE: 20160220
